FAERS Safety Report 12485243 (Version 3)
Quarter: 2019Q2

REPORT INFORMATION
  Report Type: Report from Study
  Country: CN (occurrence: CN)
  Receive Date: 20160621
  Receipt Date: 20190606
  Transmission Date: 20190711
  Serious: Yes (Death, Other)
  Sender: FDA-Public Use
  Company Number: CN-TAKEDA-2016MPI005673

PATIENT
  Age: 64 Year
  Sex: Male
  Weight: 44 kg

DRUGS (3)
  1. BORTEZOMIB. [Suspect]
     Active Substance: BORTEZOMIB
     Indication: MANTLE CELL LYMPHOMA
     Dosage: 1.3 MG/M2, UNK
     Route: 042
     Dates: start: 20140721
  2. DOXORUBICIN                        /00330902/ [Concomitant]
     Active Substance: DOXORUBICIN
     Dosage: UNK
     Route: 065
  3. BORTEZOMIB. [Suspect]
     Active Substance: BORTEZOMIB
     Indication: PLASMA CELL MYELOMA
     Dosage: 1.3 MG/M2, UNK
     Route: 058
     Dates: start: 20140721

REACTIONS (5)
  - Pneumonia [Fatal]
  - Bone marrow failure [Unknown]
  - Gastrointestinal infection [Fatal]
  - Disease progression [Fatal]
  - Lung infection [Fatal]

NARRATIVE: CASE EVENT DATE: 20140722
